FAERS Safety Report 20685591 (Version 6)
Quarter: 2022Q2

REPORT INFORMATION
  Report Type: Report from Study
  Country: IE (occurrence: IE)
  Receive Date: 20220407
  Receipt Date: 20220621
  Transmission Date: 20220721
  Serious: Yes (Death, Hospitalization, Other)
  Sender: FDA-Public Use
  Company Number: IE-CELGENE-GBR-20191004799

PATIENT
  Age: 74 Year
  Sex: Male

DRUGS (102)
  1. IXAZOMIB [Suspect]
     Active Substance: IXAZOMIB
     Indication: Plasma cell myeloma
     Dosage: 4 MILLIGRAM, 1/WEEK
     Route: 048
     Dates: start: 20190615, end: 20190622
  2. IXAZOMIB [Suspect]
     Active Substance: IXAZOMIB
     Dosage: 4 MILLIGRAM, 1/WEEK
     Route: 048
     Dates: start: 20190620, end: 20190802
  3. IXAZOMIB [Suspect]
     Active Substance: IXAZOMIB
     Dosage: 4 MILLIGRAM, 1/WEEK
     Route: 048
     Dates: start: 20190629, end: 20190713
  4. IXAZOMIB [Suspect]
     Active Substance: IXAZOMIB
     Dosage: 4 MILLIGRAM, 1/WEEK
     Route: 048
     Dates: start: 20190713
  5. IXAZOMIB [Suspect]
     Active Substance: IXAZOMIB
     Dosage: 4 MILLIGRAM, 1/WEEK
     Route: 048
     Dates: start: 20190803, end: 20190809
  6. IXAZOMIB [Suspect]
     Active Substance: IXAZOMIB
     Dosage: 4 MILLIGRAM, 1/WEEK
     Route: 048
     Dates: start: 20190810, end: 20190824
  7. IXAZOMIB [Suspect]
     Active Substance: IXAZOMIB
     Dosage: 4 MILLIGRAM, 1/WEEK
     Route: 048
     Dates: start: 20191213, end: 20191226
  8. DEXAMETHASONE [Suspect]
     Active Substance: DEXAMETHASONE
     Indication: Plasma cell myeloma
     Dosage: 20 MILLIGRAM, 1/WEEK
     Route: 048
     Dates: start: 20180821, end: 20190101
  9. DEXAMETHASONE [Suspect]
     Active Substance: DEXAMETHASONE
     Dosage: 20 MILLIGRAM, 1/WEEK
     Route: 048
     Dates: start: 20190614, end: 20190830
  10. DEXAMETHASONE [Suspect]
     Active Substance: DEXAMETHASONE
     Dosage: 20 MILLIGRAM, 1/WEEK
     Route: 048
     Dates: start: 20190906, end: 20191010
  11. DEXAMETHASONE [Suspect]
     Active Substance: DEXAMETHASONE
     Dosage: 20 MILLIGRAM, 1/WEEK
     Route: 048
     Dates: start: 20191213, end: 20191228
  12. REVLIMID [Suspect]
     Active Substance: LENALIDOMIDE
     Indication: Plasma cell myeloma
     Dosage: 25 MILLIGRAM, QD
     Route: 048
     Dates: start: 20180821, end: 20180909
  13. REVLIMID [Suspect]
     Active Substance: LENALIDOMIDE
     Dosage: 25 MILLIGRAM, QD
     Route: 048
     Dates: start: 20180917, end: 20181007
  14. REVLIMID [Suspect]
     Active Substance: LENALIDOMIDE
     Dosage: 25 MILLIGRAM, QD
     Route: 048
     Dates: start: 20181015, end: 20181104
  15. REVLIMID [Suspect]
     Active Substance: LENALIDOMIDE
     Dosage: 25 MILLIGRAM, QD
     Route: 048
     Dates: start: 20181112, end: 20181202
  16. REVLIMID [Suspect]
     Active Substance: LENALIDOMIDE
     Dosage: 25 MILLIGRAM, QD
     Route: 048
     Dates: start: 20181210, end: 20181231
  17. REVLIMID [Suspect]
     Active Substance: LENALIDOMIDE
     Dosage: 25 MILLIGRAM, QD
     Route: 048
     Dates: start: 20190614, end: 20190704
  18. REVLIMID [Suspect]
     Active Substance: LENALIDOMIDE
     Dosage: 25 MILLIGRAM, QD
     Route: 048
     Dates: start: 20190712, end: 20190801
  19. REVLIMID [Suspect]
     Active Substance: LENALIDOMIDE
     Dosage: 25 MILLIGRAM, QD
     Route: 048
     Dates: start: 20190809, end: 20190829
  20. REVLIMID [Suspect]
     Active Substance: LENALIDOMIDE
     Dosage: 25 MILLIGRAM, QD
     Route: 048
     Dates: start: 20190906, end: 20191010
  21. REVLIMID [Suspect]
     Active Substance: LENALIDOMIDE
     Dosage: 25 MILLIGRAM, QD
     Route: 048
     Dates: start: 20190906, end: 20191231
  22. REVLIMID [Suspect]
     Active Substance: LENALIDOMIDE
     Dosage: 25 MILLIGRAM, QD
     Route: 048
     Dates: start: 20191213, end: 20191231
  23. REVLIMID [Suspect]
     Active Substance: LENALIDOMIDE
     Dosage: UNK
     Route: 048
     Dates: start: 20191213
  24. CYCLOPHOSPHAMIDE [Suspect]
     Active Substance: CYCLOPHOSPHAMIDE
     Indication: Plasma cell myeloma
     Dosage: 300 MILLIGRAM, 1/WEEK
     Route: 048
     Dates: start: 20190907, end: 20191010
  25. CYCLOPHOSPHAMIDE [Suspect]
     Active Substance: CYCLOPHOSPHAMIDE
     Dosage: 300 MILLIGRAM, QD
     Route: 048
  26. CYCLOPHOSPHAMIDE [Suspect]
     Active Substance: CYCLOPHOSPHAMIDE
     Dosage: 300 MILLIGRAM, QD
     Route: 048
     Dates: start: 20190907, end: 20190907
  27. CYCLOPHOSPHAMIDE [Suspect]
     Active Substance: CYCLOPHOSPHAMIDE
     Dosage: 300 MILLIGRAM, 1/WEEK
     Route: 048
     Dates: start: 20191213, end: 20191228
  28. CYCLOPHOSPHAMIDE [Suspect]
     Active Substance: CYCLOPHOSPHAMIDE
     Dosage: 36.59 MILLIGRAM
     Route: 065
     Dates: end: 20191213
  29. CYCLOPHOSPHAMIDE [Suspect]
     Active Substance: CYCLOPHOSPHAMIDE
     Dosage: 300 MILLIGRAM, QD
     Route: 048
     Dates: start: 2019, end: 2019
  30. CYCLOPHOSPHAMIDE [Suspect]
     Active Substance: CYCLOPHOSPHAMIDE
     Dosage: 300 MILLIGRAM, QD
     Route: 048
     Dates: start: 20190907, end: 20191010
  31. CYCLOPHOSPHAMIDE [Suspect]
     Active Substance: CYCLOPHOSPHAMIDE
     Dosage: 300 MILLIGRAM, QD
     Route: 048
     Dates: start: 20191010
  32. CYCLOPHOSPHAMIDE [Suspect]
     Active Substance: CYCLOPHOSPHAMIDE
     Dosage: UNK
     Route: 065
     Dates: start: 2019, end: 20191213
  33. CYCLOPHOSPHAMIDE [Suspect]
     Active Substance: CYCLOPHOSPHAMIDE
     Dosage: 11100 MILLIGRAM
     Route: 065
     Dates: start: 20191213
  34. CYCLOPHOSPHAMIDE [Suspect]
     Active Substance: CYCLOPHOSPHAMIDE
     Dosage: 7800 MILLIGRAM
     Route: 065
     Dates: start: 20191213
  35. PANTOPRAZOLE [Concomitant]
     Active Substance: PANTOPRAZOLE
     Indication: Prophylaxis
     Dosage: 80 MILLIGRAM, QD
     Route: 048
     Dates: start: 20191016
  36. PANTOPRAZOLE [Concomitant]
     Active Substance: PANTOPRAZOLE
     Dosage: 20 MILLIGRAM, QD
     Route: 048
     Dates: start: 20190102, end: 20191015
  37. CALCIUM\CHOLECALCIFEROL [Concomitant]
     Active Substance: CALCIUM\CHOLECALCIFEROL
     Indication: Prophylaxis
     Dosage: UNK UNK, QD
     Route: 048
     Dates: start: 20190103, end: 20190211
  38. CALCIUM\CHOLECALCIFEROL [Concomitant]
     Active Substance: CALCIUM\CHOLECALCIFEROL
     Indication: Bone disorder
     Dosage: UNK, QD
     Route: 048
     Dates: start: 20191016, end: 20191029
  39. CALCIUM\CHOLECALCIFEROL [Concomitant]
     Active Substance: CALCIUM\CHOLECALCIFEROL
     Dosage: UNK, QD
     Route: 048
     Dates: start: 20190212, end: 20191015
  40. CALCIUM\CHOLECALCIFEROL [Concomitant]
     Active Substance: CALCIUM\CHOLECALCIFEROL
     Dosage: UNK, BID
     Route: 048
     Dates: start: 20190103, end: 20190211
  41. CALCIUM\CHOLECALCIFEROL [Concomitant]
     Active Substance: CALCIUM\CHOLECALCIFEROL
     Dosage: UNK, BID
     Route: 048
     Dates: start: 20190103, end: 20191011
  42. CALCIUM\CHOLECALCIFEROL [Concomitant]
     Active Substance: CALCIUM\CHOLECALCIFEROL
     Dosage: UNK, BID
     Route: 048
     Dates: start: 20191016, end: 20191029
  43. COTRIMOXAZOLE [Concomitant]
     Active Substance: SULFAMETHOXAZOLE\TRIMETHOPRIM
     Indication: Antifungal prophylaxis
     Dosage: 480 MILLIGRAM, QD
     Route: 048
     Dates: start: 20180817, end: 20191015
  44. AMLODIPINE [Concomitant]
     Active Substance: AMLODIPINE BESYLATE
     Indication: Hypertension
     Dosage: 10 MILLIGRAM, QD
     Route: 048
     Dates: end: 20191204
  45. VALACYCLOVIR HYDROCHLORIDE [Concomitant]
     Active Substance: VALACYCLOVIR HYDROCHLORIDE
     Indication: Prophylaxis
     Dosage: 500 MILLIGRAM, QD
     Route: 048
     Dates: start: 20190817
  46. ASPIRIN [Concomitant]
     Active Substance: ASPIRIN
     Indication: Prophylaxis
     Dosage: 75 MILLIGRAM, QD
     Route: 048
  47. DIETARY SUPPLEMENT [Concomitant]
     Active Substance: DIETARY SUPPLEMENT
     Indication: Malnutrition
     Dosage: UNK, QD
     Route: 048
     Dates: start: 20190102, end: 20191029
  48. SULFAMETHOXAZOLE\TRIMETHOPRIM [Concomitant]
     Active Substance: SULFAMETHOXAZOLE\TRIMETHOPRIM
     Indication: Prophylaxis
     Dosage: 20 MILLILITER, QD
     Route: 048
     Dates: start: 20190102, end: 20191015
  49. SULFAMETHOXAZOLE\TRIMETHOPRIM [Concomitant]
     Active Substance: SULFAMETHOXAZOLE\TRIMETHOPRIM
     Dosage: 10 MILLILITER, QD
     Route: 048
     Dates: start: 20191011
  50. VITAMINS [Concomitant]
     Active Substance: VITAMINS
     Indication: Prophylaxis
     Dosage: UNK, QD
     Route: 048
     Dates: start: 20190104
  51. MYCOSTATIN [Concomitant]
     Active Substance: NYSTATIN
     Indication: Tongue coated
     Dosage: UNK
     Route: 048
     Dates: start: 20190104
  52. MYCOSTATIN [Concomitant]
     Active Substance: NYSTATIN
     Indication: Prophylaxis
     Dosage: 3 MILLILITER, QD
     Route: 048
     Dates: start: 20191116, end: 20191223
  53. MYCOSTATIN [Concomitant]
     Active Substance: NYSTATIN
     Dosage: 9 MILLILITER, QD
     Route: 048
     Dates: start: 20191116, end: 20191220
  54. MYCOSTATIN [Concomitant]
     Active Substance: NYSTATIN
     Dosage: 3 MILLILITER, QD
     Route: 048
     Dates: start: 20191116, end: 20191220
  55. BUDESONIDE [Concomitant]
     Active Substance: BUDESONIDE
     Indication: Chronic obstructive pulmonary disease
     Dosage: 1 MILLIGRAM, QD
     Route: 048
     Dates: start: 20200107
  56. PRO-CAL SHOT [Concomitant]
     Indication: Malnutrition
     Dosage: 90 MILLILITER, QD
     Route: 048
     Dates: start: 20190103
  57. MEGACE [Concomitant]
     Active Substance: MEGESTROL ACETATE
     Indication: Malnutrition
     Dosage: 15 MILLILITER, QD
     Route: 048
     Dates: start: 20191011
  58. MEGACE [Concomitant]
     Active Substance: MEGESTROL ACETATE
     Dosage: 7.5 MILLILITER, QD
     Route: 048
     Dates: start: 20191011
  59. MEGACE [Concomitant]
     Active Substance: MEGESTROL ACETATE
     Dosage: 15 MILLILITER, QD
     Route: 048
     Dates: start: 20191019
  60. ZOLEDRONIC ACID [Concomitant]
     Active Substance: ZOLEDRONIC ACID
     Indication: Prophylaxis
     Dosage: 4 MILLIGRAM, MONTHLY
     Route: 041
     Dates: start: 20181106
  61. CHLORHEXIDINE [Concomitant]
     Active Substance: CHLORHEXIDINE
     Indication: Tongue coated
     Dosage: 30 MILLILITER, QD
     Route: 048
     Dates: start: 20191116, end: 20191220
  62. CARBOHYDRATES\FATTY ACIDS\MINERALS\PROTEIN\VITAMINS [Concomitant]
     Active Substance: CARBOHYDRATES\FATTY ACIDS\MINERALS\PROTEIN\VITAMINS
     Indication: Malnutrition
     Dosage: UNK, QD
     Route: 048
     Dates: start: 20190102, end: 20191029
  63. CARBOHYDRATES\FATTY ACIDS\MINERALS\PROTEIN\VITAMINS [Concomitant]
     Active Substance: CARBOHYDRATES\FATTY ACIDS\MINERALS\PROTEIN\VITAMINS
     Dosage: UNK, QD
     Route: 048
     Dates: start: 20190103, end: 20191011
  64. METOPROLOL [Concomitant]
     Active Substance: METOPROLOL
     Indication: Hypertension
     Dosage: 50 MILLIGRAM, QD
     Route: 048
  65. ZOLPIDEM [Concomitant]
     Active Substance: ZOLPIDEM TARTRATE
     Indication: Prophylaxis
     Dosage: 10 MILLIGRAM
     Route: 048
     Dates: start: 20180816, end: 20191029
  66. INFLUENZA VIRUS VACCINE [Concomitant]
     Active Substance: INFLUENZA VIRUS VACCINE
     Indication: Prophylaxis
     Dosage: UNK, QD
     Route: 065
     Dates: start: 20191112, end: 20191112
  67. FOLIC ACID [Concomitant]
     Active Substance: FOLIC ACID
     Indication: Anaemia
     Dosage: 5 MILLIGRAM, QD
     Route: 048
  68. FOLIC ACID [Concomitant]
     Active Substance: FOLIC ACID
     Dosage: 5 MILLIGRAM
     Route: 048
  69. Decapeptyl [Concomitant]
     Indication: Prostate cancer
     Dosage: 45 MILLIGRAM
     Route: 065
     Dates: start: 20190515
  70. TINZAPARIN [Concomitant]
     Active Substance: TINZAPARIN
     Indication: Prophylaxis
     Dosage: UNK, QD
     Route: 058
     Dates: start: 20190110
  71. CALCIUM CARBONATE [Concomitant]
     Active Substance: CALCIUM CARBONATE
     Indication: Malnutrition
     Dosage: UNK, BID
     Route: 048
     Dates: start: 20190103, end: 20191011
  72. MAGNESIUM OXIDE [Concomitant]
     Active Substance: MAGNESIUM OXIDE
     Indication: Malnutrition
     Dosage: UNK, QD
     Route: 048
     Dates: start: 20190103, end: 20191011
  73. MAGNESIUM OXIDE [Concomitant]
     Active Substance: MAGNESIUM OXIDE
     Dosage: UNK, BID
     Route: 048
     Dates: start: 20190103, end: 20191011
  74. ZINC SULFATE [Concomitant]
     Active Substance: ZINC SULFATE
     Indication: Malnutrition
     Dosage: UNK, BID
     Route: 048
     Dates: start: 20190104, end: 20191011
  75. VITAMIN D NOS [Concomitant]
     Active Substance: VITAMIN D NOS
     Indication: Malnutrition
     Dosage: UNK, QD
     Route: 048
     Dates: start: 20190102, end: 20190129
  76. VITAMIN D NOS [Concomitant]
     Active Substance: VITAMIN D NOS
     Dosage: UNK, BID
     Route: 048
     Dates: start: 20190102, end: 20190129
  77. VITAMIN D NOS [Concomitant]
     Active Substance: VITAMIN D NOS
     Dosage: UNK, BID
     Route: 048
     Dates: start: 20190103, end: 20191011
  78. CUPRIC SULFATE ANHYDROUS [Concomitant]
     Active Substance: CUPRIC SULFATE ANHYDROUS
     Indication: Malnutrition
     Dosage: UNK
     Route: 065
  79. CUPRIC SULFATE ANHYDROUS [Concomitant]
     Active Substance: CUPRIC SULFATE ANHYDROUS
     Dosage: UNK, QD
     Route: 048
     Dates: start: 20190103, end: 20191011
  80. CUPRIC SULFATE ANHYDROUS [Concomitant]
     Active Substance: CUPRIC SULFATE ANHYDROUS
     Dosage: UNK, QD
     Route: 048
     Dates: start: 20190103, end: 20191011
  81. TRIMETHOPRIM [Concomitant]
     Active Substance: TRIMETHOPRIM
     Indication: Antifungal prophylaxis
     Dosage: 480 MILLIGRAM, QD
     Route: 048
     Dates: start: 20191011
  82. TRIMETHOPRIM [Concomitant]
     Active Substance: TRIMETHOPRIM
     Dosage: UNK
     Route: 048
     Dates: start: 20191011
  83. TRIMETHOPRIM [Concomitant]
     Active Substance: TRIMETHOPRIM
     Dosage: 480 MILLIGRAM, QD
     Route: 048
  84. TRIMETHOPRIM [Concomitant]
     Active Substance: TRIMETHOPRIM
     Dosage: 10 MILLIGRAM, QD
     Route: 048
  85. ASPIRIN [Concomitant]
     Active Substance: ASPIRIN
     Indication: Prophylaxis
     Dosage: 75 MILLIGRAM, QD
     Route: 048
  86. MINERALS\VITAMINS [Concomitant]
     Active Substance: MINERALS\VITAMINS
     Indication: Prophylaxis
     Dosage: UNK, QD
     Route: 048
     Dates: start: 20190104
  87. CALCITONIN [Concomitant]
     Active Substance: CALCITONIN
     Indication: Malnutrition
     Dosage: UNK UNK, QD
     Route: 048
     Dates: start: 20190103, end: 20191011
  88. ASPIRIN [Concomitant]
     Active Substance: ASPIRIN
     Indication: Prophylaxis
     Dosage: 75 MILLIGRAM, QD
     Route: 048
  89. SODIUM FLUORIDE [Concomitant]
     Active Substance: SODIUM FLUORIDE
     Indication: Malnutrition
     Dosage: 90 MILLILITER, QD
     Route: 048
     Dates: start: 20190103
  90. COTRIMOXAZOLE [Concomitant]
     Active Substance: SULFAMETHOXAZOLE\TRIMETHOPRIM
     Indication: Antifungal prophylaxis
     Dosage: 480 MILLIGRAM, QD
     Route: 048
     Dates: start: 20180817, end: 20191015
  91. MANGANESE SULFATE [Concomitant]
     Active Substance: MANGANESE SULFATE
     Indication: Malnutrition
     Dosage: UNK UNK, BID
     Route: 048
     Dates: start: 20190103, end: 20191011
  92. MINERALS\VITAMINS [Concomitant]
     Active Substance: MINERALS\VITAMINS
     Dosage: UNK
     Route: 065
  93. LIDOCAINE [Concomitant]
     Active Substance: LIDOCAINE
     Dosage: UNK UNK, QD
     Route: 065
     Dates: start: 20190103, end: 20191011
  94. LIDOCAINE [Concomitant]
     Active Substance: LIDOCAINE
     Dosage: 90 MILLILITER, QD
     Route: 048
     Dates: start: 20191116, end: 20191220
  95. LIDOCAINE [Concomitant]
     Active Substance: LIDOCAINE
     Dosage: 30 MILLILITER, QD
     Route: 048
     Dates: start: 20191116, end: 20191220
  96. MAGNESIUM SULFATE [Concomitant]
     Active Substance: MAGNESIUM SULFATE
     Dosage: UNK
     Route: 065
  97. NYSTATIN [Concomitant]
     Active Substance: NYSTATIN
     Indication: Tongue coated
     Dosage: UNK
     Route: 048
     Dates: start: 20190104
  98. NYSTATIN [Concomitant]
     Active Substance: NYSTATIN
     Dosage: 9 MILLILITER, QD
     Route: 048
     Dates: start: 20191116, end: 20191220
  99. NYSTATIN [Concomitant]
     Active Substance: NYSTATIN
     Dosage: 3 MILLILITER, QD
     Route: 048
     Dates: start: 20191116, end: 20191223
  100. CHOLECALCIFEROL [Concomitant]
     Active Substance: CHOLECALCIFEROL
     Indication: Malnutrition
     Dosage: UNK, QD
     Route: 048
     Dates: start: 20190102, end: 20191029
  101. CHOLECALCIFEROL [Concomitant]
     Active Substance: CHOLECALCIFEROL
     Dosage: UNK, QD
     Route: 048
     Dates: start: 20190102, end: 20191029
  102. CHOLECALCIFEROL [Concomitant]
     Active Substance: CHOLECALCIFEROL
     Dosage: UNK, BID
     Route: 048
     Dates: start: 20190103, end: 20191011

REACTIONS (7)
  - Pulmonary embolism [Fatal]
  - COVID-19 [Fatal]
  - Respiratory tract infection [Recovered/Resolved]
  - Platelet count decreased [Recovered/Resolved]
  - Respiratory tract infection viral [Not Recovered/Not Resolved]
  - Thrombocytopenia [Recovered/Resolved]
  - Respiratory tract infection bacterial [Recovered/Resolved]

NARRATIVE: CASE EVENT DATE: 20191002
